FAERS Safety Report 5518963-X (Version None)
Quarter: 2007Q4

REPORT INFORMATION
  Report Type: 
  Country: None (occurrence: None)
  Receive Date: 20071116
  Receipt Date: 20071107
  Transmission Date: 20080405
  Serious: Yes (Other)
  Sender: FDA-Public Use
  Company Number: PHBS2007JP17368

PATIENT
  Age: 58 Year
  Sex: Male

DRUGS (6)
  1. VOLTAREN [Suspect]
     Indication: SCIATICA
     Dosage: 50 MG/DAY
     Route: 054
     Dates: start: 20070724, end: 20070724
  2. VOLTAREN [Suspect]
     Dosage: 50 MG/DAY
     Route: 054
     Dates: start: 20070803, end: 20070803
  3. FAMOTIDINE [Suspect]
     Indication: GASTRITIS
     Dosage: 20 MG/DAY
     Route: 048
     Dates: start: 20070724, end: 20070803
  4. FAMOTIDINE [Suspect]
     Dosage: 20MG
     Dates: start: 20070806
  5. ANTEBATE [Concomitant]
     Indication: DERMATITIS CONTACT
     Route: 061
     Dates: start: 20070724
  6. KETOPROFEN [Concomitant]
     Indication: SCIATICA
     Dates: start: 20070724

REACTIONS (13)
  - ALDOLASE INCREASED [None]
  - ASPARTATE AMINOTRANSFERASE INCREASED [None]
  - ASTHENIA [None]
  - BLOOD ALKALINE PHOSPHATASE INCREASED [None]
  - BLOOD CREATINE PHOSPHOKINASE INCREASED [None]
  - BLOOD LACTATE DEHYDROGENASE INCREASED [None]
  - C-REACTIVE PROTEIN INCREASED [None]
  - CHROMATURIA [None]
  - GAMMA-GLUTAMYLTRANSFERASE INCREASED [None]
  - HEPATIC FUNCTION ABNORMAL [None]
  - MYALGIA [None]
  - MYOGLOBIN BLOOD INCREASED [None]
  - RHABDOMYOLYSIS [None]
